FAERS Safety Report 9690748 (Version 1)
Quarter: 2013Q4

REPORT INFORMATION
  Report Type: Spontaneous
  Country: US (occurrence: None)
  Receive Date: 20131114
  Receipt Date: 20131114
  Transmission Date: 20140711
  Serious: Yes (Hospitalization, Disabling)
  Sender: FDA-Public Use
  Company Number: None

PATIENT
  Age: 42 Year
  Sex: Female
  Weight: 117.94 kg

DRUGS (1)
  1. MIRENA [Suspect]

REACTIONS (10)
  - Abdominal pain [None]
  - Flank pain [None]
  - Headache [None]
  - Nausea [None]
  - Pain [None]
  - Malaise [None]
  - Depression [None]
  - Anxiety [None]
  - Feeling abnormal [None]
  - Fear [None]
